FAERS Safety Report 6525958-6 (Version None)
Quarter: 2010Q1

REPORT INFORMATION
  Report Type: 
  Country: None (occurrence: None)
  Receive Date: 20100104
  Receipt Date: 20091228
  Transmission Date: 20100710
  Serious: Yes (Other)
  Sender: FDA-Public Use
  Company Number: PHHY2009BR58672

PATIENT
  Sex: Female
  Weight: 47 kg

DRUGS (1)
  1. EXELON [Suspect]
     Indication: DEMENTIA ALZHEIMER'S TYPE
     Dosage: 9MG/5CM2, DAILY
     Route: 062
     Dates: start: 20091214

REACTIONS (4)
  - DECREASED APPETITE [None]
  - DEPRESSED MOOD [None]
  - DIARRHOEA [None]
  - HAEMATURIA [None]
